FAERS Safety Report 12195925 (Version 1)
Quarter: 2016Q1

REPORT INFORMATION
  Report Type: Spontaneous
  Country: IT (occurrence: IT)
  Receive Date: 20160321
  Receipt Date: 20160321
  Transmission Date: 20160526
  Serious: Yes (Other)
  Sender: FDA-Public Use
  Company Number: PHHY2016IT033997

PATIENT
  Age: 8 Year
  Sex: Female

DRUGS (3)
  1. METHYLPREDNISOLONE. [Suspect]
     Active Substance: METHYLPREDNISOLONE
     Indication: CHORIORETINITIS
     Dosage: 30 MG/KG, UNK
     Route: 040
  2. METHOTREXATE [Concomitant]
     Active Substance: METHOTREXATE
     Indication: UVEITIS
     Dosage: 15 MG/M2, QW
     Route: 065
  3. METHYLPREDNISOLONE. [Suspect]
     Active Substance: METHYLPREDNISOLONE
     Indication: UVEITIS

REACTIONS (3)
  - Cushing^s syndrome [Unknown]
  - Drug resistance [Unknown]
  - Dependence [Unknown]
